FAERS Safety Report 9892163 (Version 1)
Quarter: 2014Q1

REPORT INFORMATION
  Report Type: Spontaneous
  Country: FR (occurrence: FR)
  Receive Date: 20140212
  Receipt Date: 20140212
  Transmission Date: 20141002
  Serious: Yes (Hospitalization)
  Sender: FDA-Public Use
  Company Number: FR-TEVA-460420ISR

PATIENT
  Age: 74 Year
  Sex: Female

DRUGS (12)
  1. CARBOPLATINE TEVA 10MG/ML [Suspect]
     Indication: OVARIAN CANCER
     Route: 041
  2. CARBOPLATINE TEVA 10MG/ML [Suspect]
     Dates: start: 20131209
  3. CARBOPLATINE TEVA 10MG/ML [Suspect]
     Dates: start: 20131227
  4. TAXOL [Concomitant]
  5. AVASTIN [Concomitant]
  6. GEMOX [Concomitant]
  7. ELISOR [Concomitant]
  8. POLARAMINE [Concomitant]
  9. XYZALL [Concomitant]
  10. SOLUMEDROL [Concomitant]
  11. EMEND [Concomitant]
  12. PRIMPERAN [Concomitant]

REACTIONS (4)
  - Hypotension [Recovered/Resolved]
  - Rash [Recovered/Resolved]
  - Consciousness fluctuating [Recovered/Resolved]
  - Cell marker increased [Unknown]
